FAERS Safety Report 7589798-1 (Version None)
Quarter: 2011Q3

REPORT INFORMATION
  Report Type: 
  Country: None (occurrence: None)
  Receive Date: 20110705
  Receipt Date: 20110629
  Transmission Date: 20111222
  Serious: Yes (Hospitalization, Other)
  Sender: FDA-Public Use
  Company Number: JP-PFIZER INC-2011144706

PATIENT
  Age: 70 Year
  Sex: Male

DRUGS (5)
  1. CORTRIL [Suspect]
     Dosage: 16NOV (UNKNOWN YEAR), 20 MG/DAY
     Route: 048
  2. CORTRIL [Suspect]
     Indication: ISOLATED ADRENOCORTICOTROPIC HORMONE DEFICIENCY
     Dosage: 02NOV (UNKNOWN YEAR), 20 MG/DAY
     Route: 048
  3. CORTRIL [Suspect]
     Dosage: 13NOV (UNKNOWN YEAR) FOR 2 DAYS, 40 MG/DAY
     Route: 048
  4. HYDROCORTISONE SODIUM SUCCINATE [Suspect]
     Indication: ISOLATED ADRENOCORTICOTROPIC HORMONE DEFICIENCY
     Dosage: 12NOV (UNKNOWN YEAR)
     Route: 041
  5. CORTRIL [Suspect]
     Dosage: 15NOV (UNKNOWN YEAR) FOR 1 DAY, 30 MG/DAY
     Route: 048

REACTIONS (1)
  - HYPOMANIA [None]
